FAERS Safety Report 7653141-X (Version None)
Quarter: 2011Q3

REPORT INFORMATION
  Report Type: 
  Country: None (occurrence: None)
  Receive Date: 20110802
  Receipt Date: 20110802
  Transmission Date: 20111222
  Serious: Yes (Other)
  Sender: FDA-Public Use
  Company Number: None

PATIENT
  Age: 62 Year
  Sex: Female
  Weight: 61.2356 kg

DRUGS (2)
  1. NUVIGIL [Suspect]
     Indication: ASTHENIA
     Dosage: ONE PILL IN AM
     Dates: start: 20110711, end: 20110718
  2. PROVIGIL [Suspect]
     Indication: ASTHENIA
     Dosage: ONE PILL IN AM  TOOK ONLY ONE
     Dates: start: 20110720

REACTIONS (1)
  - DRUG HYPERSENSITIVITY [None]
